FAERS Safety Report 25886184 (Version 1)
Quarter: 2025Q4

REPORT INFORMATION
  Report Type: Spontaneous
  Country: TR (occurrence: TR)
  Receive Date: 20251006
  Receipt Date: 20251006
  Transmission Date: 20260118
  Serious: Yes (Other)
  Sender: BRISTOL-MYERS SQUIBB COMPANY
  Company Number: TR-BRISTOL-MYERS SQUIBB COMPANY-2025-136142

PATIENT
  Age: 64 Year
  Sex: Female

DRUGS (7)
  1. ELIQUIS [Suspect]
     Active Substance: APIXABAN
     Indication: Mitral valve incompetence
     Dates: start: 2020, end: 20250923
  2. Desal [Concomitant]
     Indication: Mitral valve incompetence
     Dates: start: 2020
  3. DIGOXIN [Concomitant]
     Active Substance: DIGOXIN
     Indication: Mitral valve incompetence
     Dates: start: 2020
  4. Pulset [Concomitant]
     Indication: Product used for unknown indication
     Dates: start: 2020
  5. METOPROLOL [Concomitant]
     Active Substance: METOPROLOL
     Indication: Mitral valve incompetence
     Dates: start: 2020
  6. SPIRIVA [Concomitant]
     Active Substance: TIOTROPIUM BROMIDE MONOHYDRATE
     Indication: Chronic obstructive pulmonary disease
     Dates: start: 2012
  7. SYMBICORT [Concomitant]
     Active Substance: BUDESONIDE\FORMOTEROL FUMARATE DIHYDRATE
     Indication: Chronic obstructive pulmonary disease
     Dates: start: 2012

REACTIONS (5)
  - Gastroenteritis [Recovered/Resolved]
  - Hypertensive crisis [Recovered/Resolved]
  - Melaena [Recovered/Resolved]
  - Diarrhoea [Recovered/Resolved]
  - Off label use [Unknown]

NARRATIVE: CASE EVENT DATE: 20250922
